FAERS Safety Report 16203369 (Version 1)
Quarter: 2019Q2

REPORT INFORMATION
  Report Type: Spontaneous
  Country: FR (occurrence: FR)
  Receive Date: 20190416
  Receipt Date: 20190416
  Transmission Date: 20190711
  Serious: Yes (Other)
  Sender: FDA-Public Use
  Company Number: FR-MYLANLABS-2019M1035705

PATIENT
  Age: 36 Year
  Sex: Female
  Weight: 76 kg

DRUGS (1)
  1. IBUPROFENE MYLAN 400 MG COMPRESSE RIVESTITE CON FILM [Suspect]
     Active Substance: IBUPROFEN
     Indication: BACK PAIN
     Dosage: 400 MILLIGRAM, TOTAL
     Route: 048
     Dates: start: 20181226, end: 20181226

REACTIONS (5)
  - Vertigo [Recovered/Resolved]
  - Hyperhidrosis [Recovered/Resolved]
  - Gastrointestinal pain [Recovered/Resolved]
  - Hypothermia [Recovered/Resolved]
  - Frequent bowel movements [Recovered/Resolved]

NARRATIVE: CASE EVENT DATE: 20181226
